FAERS Safety Report 12205297 (Version 3)
Quarter: 2016Q2

REPORT INFORMATION
  Report Type: Report from Study
  Country: SE (occurrence: SE)
  Receive Date: 20160323
  Receipt Date: 20160418
  Transmission Date: 20160815
  Serious: Yes (Hospitalization)
  Sender: FDA-Public Use
  Company Number: SE-ABBVIE-16P-150-1582185-00

PATIENT
  Age: 73 Year
  Sex: Female

DRUGS (3)
  1. BEHEPAN [Concomitant]
     Active Substance: HYDROXOCOBALAMIN
     Indication: PRODUCT USED FOR UNKNOWN INDICATION
     Dosage: IN THE MORNING
     Route: 048
  2. DUODOPA [Suspect]
     Active Substance: CARBIDOPA\LEVODOPA
     Indication: PARKINSON^S DISEASE
     Dosage: MD:11 ML, CD: 3.9 ML/H, ED:1.5ML
     Route: 050
     Dates: start: 20160125, end: 20160201
  3. DUODOPA [Suspect]
     Active Substance: CARBIDOPA\LEVODOPA
     Dosage: MD:11 ML, CD: 3.9 ML/H, ED: 1.5ML
     Route: 050
     Dates: start: 20160202

REACTIONS (13)
  - Gastritis [Unknown]
  - Back pain [Recovered/Resolved]
  - Hyperkinesia [Recovered/Resolved]
  - Dehydration [Unknown]
  - Pyelonephritis [Unknown]
  - Tremor [Not Recovered/Not Resolved]
  - Gastric mucosa erythema [Unknown]
  - Vomiting [Unknown]
  - Nausea [Not Recovered/Not Resolved]
  - Urinary tract infection [Unknown]
  - Haematuria [Recovering/Resolving]
  - Chromaturia [Recovering/Resolving]
  - Fatigue [Not Recovered/Not Resolved]

NARRATIVE: CASE EVENT DATE: 2016
